FAERS Safety Report 5085597-3 (Version None)
Quarter: 2006Q3

REPORT INFORMATION
  Report Type: 
  Country: None (occurrence: None)
  Receive Date: 20060822
  Receipt Date: 20060726
  Transmission Date: 20061208
  Serious: Yes (Hospitalization)
  Sender: FDA-Public Use
  Company Number: JP-JPN-A200602836

PATIENT
  Age: 72 Year
  Sex: Female
  Weight: 36 kg

DRUGS (5)
  1. PAXIL [Suspect]
     Indication: DEPRESSION
     Route: 048
     Dates: start: 20060629
  2. DOGMATYL [Concomitant]
     Indication: DEPRESSION
     Route: 048
     Dates: start: 20060620, end: 20060802
  3. DONEPEZIL HYDROCHLORIDE [Concomitant]
     Indication: DEMENTIA
     Dosage: 5MG PER DAY
     Route: 048
     Dates: start: 20060601
  4. ALDACTONE A [Concomitant]
     Indication: HYPERTENSION
     Dosage: 25MG PER DAY
     Route: 048
     Dates: start: 20060706
  5. BAYCARON [Concomitant]
     Indication: HYPERTENSION
     Dosage: 12.5MG PER DAY
     Route: 048
     Dates: start: 20060706

REACTIONS (11)
  - CARDIOMEGALY [None]
  - CEREBRAL ISCHAEMIA [None]
  - CHOKING [None]
  - DEHYDRATION [None]
  - DELUSION [None]
  - DEPRESSED LEVEL OF CONSCIOUSNESS [None]
  - INCREASED VISCOSITY OF BRONCHIAL SECRETION [None]
  - MUSCULOSKELETAL DISCOMFORT [None]
  - OEDEMA PERIPHERAL [None]
  - SOMNOLENCE [None]
  - WEIGHT DECREASED [None]
